FAERS Safety Report 8432835-2 (Version None)
Quarter: 2012Q2

REPORT INFORMATION
  Report Type: 
  Country: None (occurrence: None)
  Receive Date: 20120613
  Receipt Date: 20120430
  Transmission Date: 20120825
  Serious: Yes (Other)
  Sender: FDA-Public Use
  Company Number: US-ASTRAZENECA-2011SE43254

PATIENT
  Age: 15 Year
  Sex: Male
  Weight: 64.4 kg

DRUGS (7)
  1. SEROQUEL XR [Suspect]
     Indication: SCHIZOPHRENIA
     Dosage: TITRATED UP BY 150 MG PER WEEK UNTIL 900 MG
     Route: 048
     Dates: start: 20110601, end: 20110718
  2. BENZTROPINE MESYLATE [Concomitant]
  3. SEROQUEL XR [Suspect]
     Route: 048
  4. SEROQUEL XR [Suspect]
     Route: 048
  5. TOPAMAX [Concomitant]
  6. COGENTIN [Concomitant]
  7. SEROQUEL XR [Suspect]
     Indication: PSYCHOTIC DISORDER
     Dosage: TITRATED UP BY 150 MG PER WEEK UNTIL 900 MG
     Route: 048
     Dates: start: 20110601, end: 20110718

REACTIONS (3)
  - COGWHEEL RIGIDITY [None]
  - DYSTONIA [None]
  - MUSCLE TIGHTNESS [None]
